FAERS Safety Report 18178498 (Version 1)
Quarter: 2020Q3

REPORT INFORMATION
  Report Type: Spontaneous
  Country: FR (occurrence: FR)
  Receive Date: 20200821
  Receipt Date: 20200821
  Transmission Date: 20201103
  Serious: Yes (Hospitalization, Other)
  Sender: FDA-Public Use
  Company Number: FR-AUROBINDO-AUR-APL-2020-039690

PATIENT
  Age: 70 Year
  Sex: Male

DRUGS (2)
  1. CERTICAN [Interacting]
     Active Substance: EVEROLIMUS
     Indication: PROPHYLAXIS AGAINST TRANSPLANT REJECTION
     Dosage: 2.5 MILLIGRAM, ONCE A DAY
     Route: 048
     Dates: start: 2013
  2. CLARITHROMYCIN. [Suspect]
     Active Substance: CLARITHROMYCIN
     Indication: LUNG DISORDER
     Dosage: 1000 MILLIGRAM, ONCE A DAY
     Route: 048
     Dates: start: 20200605, end: 20200608

REACTIONS (4)
  - Drug interaction [Recovered/Resolved]
  - Hepatocellular injury [Recovered/Resolved]
  - Accidental overdose [Recovering/Resolving]
  - Cholestasis [Recovered/Resolved]

NARRATIVE: CASE EVENT DATE: 20200605
